FAERS Safety Report 9229296 (Version 1)
Quarter: 2013Q2

REPORT INFORMATION
  Report Type: Spontaneous
  Country: US (occurrence: US)
  Receive Date: 20130412
  Receipt Date: 20130412
  Transmission Date: 20140414
  Serious: Yes (Other)
  Sender: FDA-Public Use
  Company Number: US-ASTELLAS-2013US000633

PATIENT
  Age: 59 Year
  Sex: Female

DRUGS (1)
  1. PROGRAF [Suspect]
     Indication: ANAEMIA
     Dosage: 12 MG, UID/QD
     Route: 048
     Dates: start: 20120701

REACTIONS (2)
  - Off label use [Unknown]
  - Tremor [Recovering/Resolving]
